FAERS Safety Report 9666784 (Version 1)
Quarter: 2013Q4

REPORT INFORMATION
  Report Type: Spontaneous
  Country: US (occurrence: US)
  Receive Date: 20131104
  Receipt Date: 20131104
  Transmission Date: 20140711
  Serious: Yes (Hospitalization)
  Sender: FDA-Public Use
  Company Number: US-BIOGENIDEC-2013BI087771

PATIENT
  Age: 53 Year
  Sex: Female

DRUGS (4)
  1. TECFIDERA [Suspect]
     Indication: MULTIPLE SCLEROSIS
     Route: 048
     Dates: start: 20130821
  2. SERTRALINE [Concomitant]
  3. METRONIDAZOLE [Concomitant]
  4. MIRAPEX [Concomitant]

REACTIONS (3)
  - Flushing [Unknown]
  - Decreased appetite [Unknown]
  - Fatigue [Unknown]
